FAERS Safety Report 11836786 (Version 1)
Quarter: 2015Q4

REPORT INFORMATION
  Report Type: Spontaneous
  Country: US (occurrence: US)
  Receive Date: 20151215
  Receipt Date: 20151215
  Transmission Date: 20160305
  Serious: Yes (Other)
  Sender: FDA-Public Use
  Company Number: US-ASTELLAS-2015US046809

PATIENT
  Age: 65 Year
  Sex: Male

DRUGS (10)
  1. SIROLIMUS. [Interacting]
     Active Substance: SIROLIMUS
     Dosage: 12 MG LOADING DOSE GIVEN ON DAY 1
     Route: 065
  2. CLOTRIMAZOLE. [Interacting]
     Active Substance: CLOTRIMAZOLE
     Indication: ORAL CANDIDIASIS
     Dosage: 10 MG, 5 TIMES PER DAY
     Route: 048
  3. TACROLIMUS. [Interacting]
     Active Substance: TACROLIMUS
     Dosage: 1:4 RATIO ON DAY PLUS 12 POST-ALLOGRAFTING
     Route: 048
  4. MICAFUNGIN [Suspect]
     Active Substance: MICAFUNGIN
     Indication: ANTIBIOTIC PROPHYLAXIS
     Dosage: 50 MG, ONCE DAILY ON DAY 0
     Route: 065
  5. TACROLIMUS. [Interacting]
     Active Substance: TACROLIMUS
     Indication: PROPHYLAXIS AGAINST GRAFT VERSUS HOST DISEASE
     Dosage: 0.01 MG/KG ON DAY 3, GIVEN INITIALLY 24 HOUR AS CONTINUOUS INTRAVENOUS INFUSION
     Route: 042
  6. SIROLIMUS. [Interacting]
     Active Substance: SIROLIMUS
     Dosage: 1 MG, ONCE DAILY ON DAY 27
     Route: 065
  7. ACYCLOVIR                          /00587301/ [Concomitant]
     Active Substance: ACYCLOVIR
     Indication: ANTIBIOTIC PROPHYLAXIS
     Route: 048
  8. TACROLIMUS. [Interacting]
     Active Substance: TACROLIMUS
     Dosage: 0.5 MG, ONCE DAILY ON DAY 27
     Route: 065
  9. SIROLIMUS. [Interacting]
     Active Substance: SIROLIMUS
     Indication: PROPHYLAXIS AGAINST GRAFT VERSUS HOST DISEASE
     Dosage: 4 MG, ONCE DAILY BEGINNING ON DAY 0
     Route: 065
  10. CIPROFLOXACIN. [Suspect]
     Active Substance: CIPROFLOXACIN
     Indication: ANTIBIOTIC PROPHYLAXIS
     Route: 065

REACTIONS (8)
  - Nephropathy toxic [Unknown]
  - Drug interaction [Unknown]
  - Oral candidiasis [Recovering/Resolving]
  - Off label use [Unknown]
  - Venoocclusive liver disease [Recovered/Resolved]
  - Clostridium difficile infection [Unknown]
  - Immunosuppressant drug level increased [Recovered/Resolved]
  - Acute kidney injury [Unknown]
